FAERS Safety Report 16460893 (Version 4)
Quarter: 2021Q1

REPORT INFORMATION
  Report Type: Spontaneous
  Country: IT (occurrence: IT)
  Receive Date: 20190620
  Receipt Date: 20210205
  Transmission Date: 20210419
  Serious: Yes (Other)
  Sender: FDA-Public Use
  Company Number: PHHY2019IT136998

PATIENT
  Age: 3 Year
  Sex: Female
  Weight: 15 kg

DRUGS (6)
  1. ISAVUCONAZOLE [Concomitant]
     Active Substance: ISAVUCONAZOLE
     Dosage: LOADING DOSE, 100 MG Q8H
     Route: 042
  2. AMPHOTERICIN B, LIPOSOME [Concomitant]
     Active Substance: AMPHOTERICIN B
     Indication: BRONCHOPULMONARY ASPERGILLOSIS
     Dosage: 3 MG/KG, Q24H
     Route: 065
  3. VORICONAZOLE. [Suspect]
     Active Substance: VORICONAZOLE
     Indication: BRONCHOPULMONARY ASPERGILLOSIS
     Dosage: 19 MG/KG, Q12H
     Route: 042
  4. ISAVUCONAZOLE [Concomitant]
     Active Substance: ISAVUCONAZOLE
     Indication: BRONCHOPULMONARY ASPERGILLOSIS
     Dosage: MAINTENANCE DOSE, 100 MG QD
     Route: 042
  5. VORICONAZOLE. [Suspect]
     Active Substance: VORICONAZOLE
     Indication: ASPERGILLUS INFECTION
     Dosage: 8 MG/KG, Q12H FIRST?LINE ANTIFUNGAL TREATMENT; AS MAINTENANCE DOSE
     Route: 042
  6. VORICONAZOLE. [Suspect]
     Active Substance: VORICONAZOLE
     Indication: CEREBRAL ASPERGILLOSIS
     Dosage: 9 MG/KG, Q12H FIRST?LINE ANTIFUNGAL TREATMENT; LOADING DOSE
     Route: 042

REACTIONS (3)
  - Drug ineffective [Unknown]
  - Drug level below therapeutic [Not Recovered/Not Resolved]
  - Treatment failure [Unknown]
